FAERS Safety Report 5737383-6 (Version None)
Quarter: 2008Q2

REPORT INFORMATION
  Report Type: 
  Country: None (occurrence: None)
  Receive Date: 20080514
  Receipt Date: 20080325
  Transmission Date: 20081010
  Serious: Yes (Disabling, Other)
  Sender: FDA-Public Use
  Company Number: US-BRISTOL-MYERS SQUIBB COMPANY-14053425

PATIENT
  Age: 50 Year
  Sex: Female

DRUGS (3)
  1. IXEMPRA KIT [Suspect]
     Indication: BREAST CANCER METASTATIC
     Route: 042
     Dates: start: 20080104, end: 20080104
  2. BENADRYL [Concomitant]
     Dates: start: 20080104
  3. TAGAMET [Concomitant]
     Dates: start: 20080104

REACTIONS (6)
  - ANOREXIA [None]
  - ARTHRALGIA [None]
  - ASTHENIA [None]
  - DIARRHOEA [None]
  - MYALGIA [None]
  - STOMATITIS [None]
